FAERS Safety Report 10991345 (Version 8)
Quarter: 2015Q4

REPORT INFORMATION
  Report Type: Spontaneous
  Country: US (occurrence: US)
  Receive Date: 20150406
  Receipt Date: 20151013
  Transmission Date: 20160304
  Serious: Yes (Other)
  Sender: FDA-Public Use
  Company Number: US-TEVA-551867USA

PATIENT
  Age: 69 Year
  Sex: Male
  Weight: 99.88 kg

DRUGS (12)
  1. PROVIGIL [Suspect]
     Active Substance: MODAFINIL
     Indication: PRODUCT USED FOR UNKNOWN INDICATION
     Dosage: DOSE AND FREQUENCY NOT PROVIDED
     Route: 065
     Dates: start: 201502
  2. TRAZODONE [Concomitant]
     Active Substance: TRAZODONE HYDROCHLORIDE
     Indication: SLEEP DISORDER
  3. NUVIGIL [Suspect]
     Active Substance: ARMODAFINIL
     Dates: start: 20150803
  4. NUVIGIL [Suspect]
     Active Substance: ARMODAFINIL
     Indication: SLEEP DISORDER
     Route: 065
     Dates: start: 20150314
  5. OXYCODONE [Suspect]
     Active Substance: OXYCODONE
     Indication: PAIN
     Dosage: DOSE AND FREQUENCY NOT PROVIDED
     Route: 065
  6. LOSARTAN. [Concomitant]
     Active Substance: LOSARTAN
  7. ALLOPURINOL. [Concomitant]
     Active Substance: ALLOPURINOL
  8. GABAPENTIN. [Suspect]
     Active Substance: GABAPENTIN
     Indication: PRODUCT USED FOR UNKNOWN INDICATION
     Dosage: DOSE AND FREQUENCY NOT PROVIDED
     Route: 065
  9. CLONAZEPAM. [Concomitant]
     Active Substance: CLONAZEPAM
  10. EFFEXOR [Concomitant]
     Active Substance: VENLAFAXINE HYDROCHLORIDE
  11. TAMSULOSIN [Concomitant]
     Active Substance: TAMSULOSIN
  12. LEVOTHYROXINE. [Concomitant]
     Active Substance: LEVOTHYROXINE

REACTIONS (26)
  - Oxygen consumption decreased [Unknown]
  - Testicular pain [Not Recovered/Not Resolved]
  - Drug prescribing error [Unknown]
  - Nervousness [Unknown]
  - Loss of consciousness [Unknown]
  - Toothache [Recovered/Resolved]
  - Tooth infection [Unknown]
  - Drug ineffective [Not Recovered/Not Resolved]
  - Drug dose omission [Unknown]
  - Product packaging quantity issue [Unknown]
  - Chromaturia [Not Recovered/Not Resolved]
  - Loss of consciousness [Not Recovered/Not Resolved]
  - Dizziness [Recovered/Resolved]
  - Upper respiratory tract infection [Not Recovered/Not Resolved]
  - Fall [Unknown]
  - Urinary retention [Not Recovered/Not Resolved]
  - Spinal column stenosis [Not Recovered/Not Resolved]
  - Testicular disorder [Not Recovered/Not Resolved]
  - Somnolence [Not Recovered/Not Resolved]
  - Wrong technique in product usage process [Unknown]
  - Anxiety [Unknown]
  - Brain operation [Unknown]
  - Urinary tract infection [Recovered/Resolved]
  - Coordination abnormal [Not Recovered/Not Resolved]
  - Balance disorder [Recovered/Resolved]
  - Depressed mood [Not Recovered/Not Resolved]

NARRATIVE: CASE EVENT DATE: 2015
